FAERS Safety Report 8552989-7 (Version None)
Quarter: 2012Q3

REPORT INFORMATION
  Report Type: 
  Country: None (occurrence: None)
  Receive Date: 20120731
  Receipt Date: 20120724
  Transmission Date: 20120928
  Serious: Yes (Hospitalization)
  Sender: FDA-Public Use
  Company Number: BE-PFIZER INC-2012180127

PATIENT
  Sex: Male
  Weight: 58 kg

DRUGS (3)
  1. GENOTROPIN [Suspect]
     Dosage: 0.6 MG, 7/WK
     Route: 058
     Dates: start: 20020610
  2. WARFARIN [Concomitant]
     Indication: COAGULOPATHY
     Dosage: UNK
     Dates: start: 20000101
  3. ACETYLSALICYLIC ACID [Concomitant]
     Dosage: UNK
     Dates: start: 20000101

REACTIONS (1)
  - INGUINAL HERNIA [None]
